FAERS Safety Report 11977402 (Version 3)
Quarter: 2016Q1

REPORT INFORMATION
  Report Type: Spontaneous
  Country: HR (occurrence: HR)
  Receive Date: 20160129
  Receipt Date: 20160210
  Transmission Date: 20160526
  Serious: Yes (Hospitalization, Other)
  Sender: FDA-Public Use
  Company Number: HR-JNJFOC-20160117117

PATIENT
  Age: 53 Year
  Sex: Male
  Weight: 80 kg

DRUGS (6)
  1. PEGASYS [Suspect]
     Active Substance: PEGINTERFERON ALFA-2A
     Indication: CHRONIC HEPATITIS C
     Dosage: DOSAGE FORM: PRE-FILLED SYRINGES    ??DELAYED INTERFERON TREATMENT
     Route: 058
     Dates: start: 20151209
  2. RIBAVIRIN. [Suspect]
     Active Substance: RIBAVIRIN
     Indication: CHRONIC HEPATITIS C
     Route: 048
     Dates: start: 20151216, end: 20151218
  3. PEGASYS [Suspect]
     Active Substance: PEGINTERFERON ALFA-2A
     Indication: CHRONIC HEPATITIS C
     Route: 058
     Dates: end: 20151220
  4. RIBAVIRIN. [Suspect]
     Active Substance: RIBAVIRIN
     Indication: CHRONIC HEPATITIS C
     Route: 048
     Dates: end: 20151220
  5. OLYSIO [Suspect]
     Active Substance: SIMEPREVIR
     Indication: CHRONIC HEPATITIS C
     Route: 048
     Dates: start: 20151209, end: 20151220
  6. RIBAVIRIN. [Suspect]
     Active Substance: RIBAVIRIN
     Indication: CHRONIC HEPATITIS C
     Route: 048
     Dates: start: 20151209

REACTIONS (2)
  - Erythema multiforme [Recovering/Resolving]
  - Rash generalised [Recovering/Resolving]

NARRATIVE: CASE EVENT DATE: 20151214
